FAERS Safety Report 8846896 (Version 1)
Quarter: 2012Q4

REPORT INFORMATION
  Report Type: 
  Country: US (occurrence: US)
  Receive Date: 20121018
  Receipt Date: 20121018
  Transmission Date: 20130627
  Serious: Yes (Other)
  Sender: FDA-Public Use
  Company Number: US-INCYTE CORPORATION-2012IN002049

PATIENT
  Age: 79 Year
  Sex: Male

DRUGS (1)
  1. JAKAFI [Suspect]
     Indication: BONE MARROW DISORDER
     Dosage: 15 mg, qd
     Route: 048
     Dates: end: 20121006

REACTIONS (1)
  - Pneumonia [Not Recovered/Not Resolved]
